FAERS Safety Report 18323444 (Version 1)
Quarter: 2020Q3

REPORT INFORMATION
  Report Type: Spontaneous
  Country: US (occurrence: US)
  Receive Date: 20200929
  Receipt Date: 20200929
  Transmission Date: 20201103
  Serious: Yes (Hospitalization)
  Sender: FDA-Public Use
  Company Number: None

PATIENT
  Age: 75 Year
  Sex: Female
  Weight: 76 kg

DRUGS (10)
  1. DAPTOMYCIN. [Suspect]
     Active Substance: DAPTOMYCIN
     Indication: OSTEOMYELITIS
     Dosage: ?          OTHER FREQUENCY:EVERY OTHER DAY;?
     Route: 042
     Dates: start: 20200824, end: 20200904
  2. PANTOPRAZOLE [Concomitant]
     Active Substance: PANTOPRAZOLE
  3. POLYETHYLENE GLYCOL LAXATIVE [Concomitant]
  4. BIOTENE SPRAY [Concomitant]
  5. ERTAPENEM. [Concomitant]
     Active Substance: ERTAPENEM SODIUM
  6. CARVEDILOL. [Concomitant]
     Active Substance: CARVEDILOL
  7. LOSARTAN. [Concomitant]
     Active Substance: LOSARTAN
  8. ONDANSETRON [Concomitant]
     Active Substance: ONDANSETRON
  9. DAPTOMYCIN. [Suspect]
     Active Substance: DAPTOMYCIN
     Indication: ARTHRITIS INFECTIVE
     Dosage: ?          OTHER FREQUENCY:EVERY OTHER DAY;?
     Route: 042
     Dates: start: 20200824, end: 20200904
  10. TIZANIDINE. [Concomitant]
     Active Substance: TIZANIDINE

REACTIONS (1)
  - Blood creatine phosphokinase increased [None]

NARRATIVE: CASE EVENT DATE: 20200905
